FAERS Safety Report 23950213 (Version 1)
Quarter: 2024Q2

REPORT INFORMATION
  Report Type: Spontaneous
  Country: US (occurrence: US)
  Receive Date: 20240607
  Receipt Date: 20240607
  Transmission Date: 20240717
  Serious: No
  Sender: FDA-Public Use
  Company Number: US-CSPC Ouyi Pharmaceutical Co., Ltd.-2157884

PATIENT
  Sex: Female

DRUGS (1)
  1. AZITHROMYCIN [Suspect]
     Active Substance: AZITHROMYCIN

REACTIONS (4)
  - Nausea [Unknown]
  - Back pain [Unknown]
  - Abdominal pain upper [Unknown]
  - Abdominal distension [Unknown]
